FAERS Safety Report 7970397-4 (Version None)
Quarter: 2011Q4

REPORT INFORMATION
  Report Type: 
  Country: None (occurrence: None)
  Receive Date: 20111122
  Receipt Date: 20110801
  Transmission Date: 20120403
  Serious: Yes (Other)
  Sender: FDA-Public Use
  Company Number: PHHY2011US48746

PATIENT
  Age: 40 Year
  Sex: Male

DRUGS (10)
  1. BACLOFEN [Concomitant]
  2. PRILOSEC (OMEPRAZOLE), 20 MG [Concomitant]
  3. PRDNISONE (PREDNISONE) TABLET, 10MG [Concomitant]
  4. KEPPRA (LEVETIRACETAM) TABLET, 500 MG [Concomitant]
  5. VITAMIN D (ERGOCALCIFEROL), 5000 IU [Concomitant]
  6. HYDROCODONE W/ACETAMINOPHEN (HYDROCODONE BITARTRATE, PARACETAMOL) TABL [Concomitant]
  7. YCLOBENZAPRINE HYDROCHLORIDE (CYCLOBENZAPRINE HYDROCHLORIDE) TABLET, 1 [Concomitant]
  8. GILENYA [Suspect]
     Indication: RELAPSING-REMITTING MULTIPLE SCLEROSIS
     Dosage: 0.5 MG, QD,ORAL
     Route: 048
     Dates: start: 20110505, end: 20110523
  9. OXYBUTYNIN CHLORIDE (OXYBUTYNIN HYDROCHLORIDE) TABLET, 5 MG [Concomitant]
  10. NORTRIPTYLINE HYDROCHLORIDE (NORTRIPTYLINE HYDROCHLORIDE) CAPSULE, 25M [Concomitant]

REACTIONS (9)
  - MUSCULAR WEAKNESS [None]
  - PARAESTHESIA [None]
  - GAIT DISTURBANCE [None]
  - HEART RATE INCREASED [None]
  - MACULAR OEDEMA [None]
  - MULTIPLE SCLEROSIS RELAPSE [None]
  - DIPLOPIA [None]
  - VISUAL ACUITY REDUCED [None]
  - FACIAL PARESIS [None]
